FAERS Safety Report 7214230-7 (Version None)
Quarter: 2011Q1

REPORT INFORMATION
  Report Type: 
  Country: None (occurrence: None)
  Receive Date: 20110107
  Receipt Date: 20101227
  Transmission Date: 20110831
  Serious: Yes (Other)
  Sender: FDA-Public Use
  Company Number: FR-KINGPHARMUSA00001-K201001541

PATIENT
  Age: 69 Year
  Sex: Male

DRUGS (12)
  1. ASPIRIN [Suspect]
     Indication: MYOCARDIAL INFARCTION
     Dosage: 75 MG, QD
  2. BISOPROLOL [Suspect]
     Indication: BLOOD PRESSURE INCREASED
     Dosage: 1.25 MG, QD
  3. VENTOLIN [Concomitant]
  4. ALTACE [Suspect]
     Indication: BLOOD PRESSURE INCREASED
     Dosage: 1.25 MG, QD
     Route: 048
  5. OMEPRAZOLE [Concomitant]
     Dosage: 20 MG, QD
  6. QUININE [Concomitant]
     Dosage: 1 DF, QD
  7. ASPIRIN [Suspect]
     Indication: CARDIAC ARREST
  8. SERETIDE [Concomitant]
     Dosage: 500 MG, QD
  9. TIOTROPIUM BROMIDE [Concomitant]
  10. MELOXICAM [Suspect]
     Indication: PLEURITIC PAIN
     Dosage: 7.5 MG, QD
     Dates: start: 20100916
  11. ISOSORBIDE DINITRATE [Concomitant]
     Dosage: 10 MG AM + 20 MG PM
  12. CORTICOSTEROID NOS [Concomitant]
     Indication: PLEURISY
     Dosage: UNK

REACTIONS (8)
  - CONFUSIONAL STATE [None]
  - URINE COLOUR ABNORMAL [None]
  - DELIRIUM [None]
  - EYE MOVEMENT DISORDER [None]
  - SOMNOLENCE [None]
  - HALLUCINATION [None]
  - DRUG INTERACTION [None]
  - DIARRHOEA [None]
